FAERS Safety Report 19967977 (Version 2)
Quarter: 2021Q4

REPORT INFORMATION
  Report Type: Spontaneous
  Country: US (occurrence: US)
  Receive Date: 20211019
  Receipt Date: 20211021
  Transmission Date: 20220303
  Serious: No
  Sender: FDA-Public Use
  Company Number: US-BIOGEN-2021BI01058404

PATIENT
  Sex: Female

DRUGS (1)
  1. TECFIDERA [Suspect]
     Active Substance: DIMETHYL FUMARATE
     Indication: Multiple sclerosis
     Route: 065
     Dates: end: 20211009

REACTIONS (9)
  - Drug ineffective [Unknown]
  - Muscle spasms [Unknown]
  - Urinary incontinence [Unknown]
  - Fatigue [Unknown]
  - Nystagmus [Not Recovered/Not Resolved]
  - Dysstasia [Not Recovered/Not Resolved]
  - Gait inability [Not Recovered/Not Resolved]
  - Clubbing [Not Recovered/Not Resolved]
  - Flushing [Unknown]
